FAERS Safety Report 18439241 (Version 2)
Quarter: 2020Q4

REPORT INFORMATION
  Report Type: Spontaneous
  Country: NL (occurrence: NL)
  Receive Date: 20201029
  Receipt Date: 20201104
  Transmission Date: 20210114
  Serious: Yes (Life-Threatening)
  Sender: FDA-Public Use
  Company Number: NL-B.I. PHARMACEUTICALS,INC./RIDGEFIELD-2020-BI-057955

PATIENT
  Age: 57 Year
  Sex: Female
  Weight: 79.1 kg

DRUGS (11)
  1. MACROGOL [Concomitant]
     Active Substance: POLYETHYLENE GLYCOLS
     Indication: PRODUCT USED FOR UNKNOWN INDICATION
     Dosage: POWDER FOR DRINK/ POEDER VOOR DRANK
  2. TOPIRAMAAT [Suspect]
     Active Substance: TOPIRAMATE
     Indication: BIPOLAR DISORDER
     Dosage: 2X PER DAY 3 TABLET/2X PER DAG 3 TABLET
  3. TEMAZEPAM. [Concomitant]
     Active Substance: TEMAZEPAM
     Indication: PRODUCT USED FOR UNKNOWN INDICATION
     Dosage: CAPSULE, 10 MG (MILLIGRAM)
  4. OMEPRAZOLE. [Concomitant]
     Active Substance: OMEPRAZOLE
     Indication: PRODUCT USED FOR UNKNOWN INDICATION
     Dosage: GASTRIC ACID RESISTANT CAPSULE, 20 MG (MILLIGRAM)/MAAGSAPRESISTENTE CAPSULE, 20 MG (MILLIGRAM)
  5. FERROFUMARAAT [Concomitant]
     Active Substance: FERROUS FUMARATE
     Indication: PRODUCT USED FOR UNKNOWN INDICATION
     Dosage: TABLET, 200 MG (MILLIGRAM)
  6. TOPIRAMAAT [Suspect]
     Active Substance: TOPIRAMATE
     Indication: SCHIZOAFFECTIVE DISORDER
  7. QUETIAPINE. [Concomitant]
     Active Substance: QUETIAPINE
     Indication: PRODUCT USED FOR UNKNOWN INDICATION
     Dosage: FILM COATED TABLET, 200 MG (MILLIGRAM)/FILMOMHULDE TABLET, 200 MG (MILLIGRAM)
  8. SALBUTAMOL [Concomitant]
     Active Substance: ALBUTEROL
     Indication: PRODUCT USED FOR UNKNOWN INDICATION
     Dosage: AEROSOL, 100 UG/DOSIS (MICROGRAM PER DOSIS)
  9. CATAPRESAN [CLONIDINE] [Suspect]
     Active Substance: CLONIDINE
     Indication: HYPERHIDROSIS
     Dosage: 2 DD 2 TABLET
     Dates: end: 20200813
  10. CATAPRESAN [CLONIDINE] [Suspect]
     Active Substance: CLONIDINE
     Indication: HYPERHIDROSIS
  11. BUPRENORFINE MYLAN [Concomitant]
     Indication: PRODUCT USED FOR UNKNOWN INDICATION
     Dosage: PATCH, 15 UG (MICROGRAM) PER HOUR/PLEISTER, 15 UG (MICROGRAM) PER UUR

REACTIONS (2)
  - Potentiating drug interaction [Recovering/Resolving]
  - Hyperthermia [Recovering/Resolving]

NARRATIVE: CASE EVENT DATE: 20200813
